FAERS Safety Report 9230188 (Version 1)
Quarter: 2013Q2

REPORT INFORMATION
  Report Type: Report from Study
  Country: CA (occurrence: CA)
  Receive Date: 20130415
  Receipt Date: 20130415
  Transmission Date: 20140414
  Serious: Yes (Hospitalization)
  Sender: FDA-Public Use
  Company Number: CA-JNJFOC-20130404034

PATIENT
  Sex: Female
  Weight: 133.5 kg

DRUGS (4)
  1. REMICADE [Suspect]
     Indication: CROHN^S DISEASE
     Dosage: FOR 52 (UNSPECIFIED)
     Route: 042
     Dates: start: 20110426
  2. VENTOLIN [Concomitant]
     Dosage: X YEARS
     Route: 065
  3. ADVAIR [Concomitant]
     Dosage: YEARS
     Route: 065
  4. CIPRALEX [Concomitant]
     Route: 048
     Dates: start: 2011

REACTIONS (2)
  - Neck pain [Not Recovered/Not Resolved]
  - Nerve compression [Not Recovered/Not Resolved]
